FAERS Safety Report 13359610 (Version 1)
Quarter: 2017Q1

REPORT INFORMATION
  Report Type: Spontaneous
  Country: US (occurrence: US)
  Receive Date: 20170322
  Receipt Date: 20170322
  Transmission Date: 20170429
  Serious: Yes (Hospitalization)
  Sender: FDA-Public Use
  Company Number: US-ABBVIE-17K-163-1911637-00

PATIENT
  Age: 55 Year
  Sex: Female
  Weight: 52.21 kg

DRUGS (7)
  1. FLEXERIL [Concomitant]
     Active Substance: CYCLOBENZAPRINE HYDROCHLORIDE
     Indication: MYALGIA
  2. MAXALT [Concomitant]
     Active Substance: RIZATRIPTAN BENZOATE
     Indication: MIGRAINE
  3. HUMIRA [Suspect]
     Active Substance: ADALIMUMAB
     Route: 058
     Dates: start: 201611
  4. HUMIRA [Suspect]
     Active Substance: ADALIMUMAB
     Indication: PSORIASIS
     Route: 058
     Dates: start: 201408, end: 201604
  5. AMBIEN [Concomitant]
     Active Substance: ZOLPIDEM TARTRATE
     Indication: INSOMNIA
  6. ALEVE [Concomitant]
     Active Substance: NAPROXEN SODIUM
     Indication: PRODUCT USED FOR UNKNOWN INDICATION
  7. HUMIRA [Suspect]
     Active Substance: ADALIMUMAB
     Indication: PSORIATIC ARTHROPATHY
     Route: 058
     Dates: start: 201607, end: 201610

REACTIONS (7)
  - Dehydration [Recovered/Resolved]
  - Device issue [Unknown]
  - Loss of consciousness [Recovered/Resolved]
  - Blood potassium decreased [Recovered/Resolved]
  - Dysphonia [Not Recovered/Not Resolved]
  - Oropharyngeal pain [Not Recovered/Not Resolved]
  - Contusion [Recovered/Resolved]

NARRATIVE: CASE EVENT DATE: 201610
